FAERS Safety Report 8054281-6 (Version None)
Quarter: 2012Q1

REPORT INFORMATION
  Report Type: 
  Country: None (occurrence: None)
  Receive Date: 20120118
  Receipt Date: 20120110
  Transmission Date: 20120608
  Serious: Yes (Other)
  Sender: FDA-Public Use
  Company Number: PHHY2011JP111326

PATIENT

DRUGS (1)
  1. ZOLEDRONIC ACID [Suspect]
     Dosage: UNK UKN, UNK
     Route: 041
     Dates: start: 20090101

REACTIONS (1)
  - OSTEONECROSIS OF JAW [None]
